FAERS Safety Report 7014299-9 (Version None)
Quarter: 2010Q3

REPORT INFORMATION
  Report Type: 
  Country: None (occurrence: None)
  Receive Date: 20100924
  Receipt Date: 20100924
  Transmission Date: 20110219
  Serious: Yes (Disabling, Other)
  Sender: FDA-Public Use
  Company Number: None

PATIENT
  Age: 26 Year
  Sex: Female
  Weight: 65.7716 kg

DRUGS (1)
  1. BACTRIM DS [Suspect]
     Indication: URINARY TRACT INFECTION
     Dosage: 800 MG BID PO
     Route: 048
     Dates: start: 20100919, end: 20100923

REACTIONS (4)
  - ASTHENIA [None]
  - DEPRESSION [None]
  - FATIGUE [None]
  - PRESYNCOPE [None]
